FAERS Safety Report 9739114 (Version 3)
Quarter: 2013Q4

REPORT INFORMATION
  Report Type: Spontaneous
  Country: US (occurrence: US)
  Receive Date: 20131209
  Receipt Date: 20131212
  Transmission Date: 20140711
  Serious: Yes (Hospitalization)
  Sender: FDA-Public Use
  Company Number: US-DRREDDYS-USA/USA/13/0036179

PATIENT
  Age: 15 Year
  Sex: Female

DRUGS (1)
  1. ZENATANE [Suspect]
     Indication: ACNE
     Route: 048
     Dates: start: 201309, end: 20131004

REACTIONS (2)
  - Decreased appetite [Unknown]
  - Malnutrition [Unknown]
